FAERS Safety Report 19271008 (Version 2)
Quarter: 2021Q2

REPORT INFORMATION
  Report Type: Spontaneous
  Country: US (occurrence: US)
  Receive Date: 20210518
  Receipt Date: 20210629
  Transmission Date: 20210717
  Serious: Yes (Other)
  Sender: FDA-Public Use
  Company Number: US-ASTRAZENECA-2021A427319

PATIENT
  Sex: Female

DRUGS (1)
  1. FASENRA [Suspect]
     Active Substance: BENRALIZUMAB
     Indication: ASTHMA
     Dosage: 30.0MG UNKNOWN
     Route: 058

REACTIONS (7)
  - Arthralgia [Unknown]
  - Muscle disorder [Unknown]
  - Middle insomnia [Unknown]
  - Wheezing [Unknown]
  - Pain [Unknown]
  - Cough [Unknown]
  - Chest discomfort [Unknown]
